FAERS Safety Report 6394061-0 (Version None)
Quarter: 2009Q4

REPORT INFORMATION
  Report Type: 
  Country: None (occurrence: None)
  Receive Date: 20091008
  Receipt Date: 20090930
  Transmission Date: 20100525
  Serious: Yes (Hospitalization)
  Sender: FDA-Public Use
  Company Number: US-GENENTECH-290550

PATIENT
  Sex: Male
  Weight: 84.81 kg

DRUGS (9)
  1. AVASTIN [Suspect]
     Indication: MULTIPLE MYELOMA
     Dosage: 1395 MG, Q3W
     Route: 042
     Dates: start: 20090609, end: 20090901
  2. VELCADE [Suspect]
     Indication: MULTIPLE MYELOMA
     Dosage: 1.3 MG/M2, 2/WEEK
     Route: 042
     Dates: start: 20090609, end: 20090814
  3. AGGRENOX [Concomitant]
     Indication: DRUG USE FOR UNKNOWN INDICATION
  4. PROTONIX [Concomitant]
     Indication: DRUG USE FOR UNKNOWN INDICATION
  5. ZOLOFT [Concomitant]
     Indication: DRUG USE FOR UNKNOWN INDICATION
  6. FLOMAX [Concomitant]
     Indication: DRUG USE FOR UNKNOWN INDICATION
  7. AMBIEN [Concomitant]
     Indication: DRUG USE FOR UNKNOWN INDICATION
  8. ZYRTEC [Concomitant]
     Indication: DRUG USE FOR UNKNOWN INDICATION
  9. ACYCLOVIR [Concomitant]
     Indication: DRUG USE FOR UNKNOWN INDICATION

REACTIONS (3)
  - BLOOD PRESSURE FLUCTUATION [None]
  - NEUROPATHY PERIPHERAL [None]
  - TRANSIENT ISCHAEMIC ATTACK [None]
